FAERS Safety Report 24907882 (Version 1)
Quarter: 2025Q1

REPORT INFORMATION
  Report Type: Report from Study
  Country: CA (occurrence: CA)
  Receive Date: 20250131
  Receipt Date: 20250131
  Transmission Date: 20250409
  Serious: Yes (Other)
  Sender: TAKEDA
  Company Number: CA-TAKEDA-2024TUS005907

PATIENT
  Sex: Male

DRUGS (10)
  1. VEDOLIZUMAB [Suspect]
     Active Substance: VEDOLIZUMAB
     Indication: Colitis ulcerative
  2. VEDOLIZUMAB [Suspect]
     Active Substance: VEDOLIZUMAB
  3. VEDOLIZUMAB [Suspect]
     Active Substance: VEDOLIZUMAB
  4. ROSUVASTATIN [Concomitant]
     Active Substance: ROSUVASTATIN
  5. ATENOLOL [Concomitant]
     Active Substance: ATENOLOL
  6. PERINDOPRIL [Concomitant]
     Active Substance: PERINDOPRIL
  7. LINAGLIPTIN [Concomitant]
     Active Substance: LINAGLIPTIN
  8. METFORMIN [Concomitant]
     Active Substance: METFORMIN HYDROCHLORIDE
  9. RABEPRAZOLE [Concomitant]
     Active Substance: RABEPRAZOLE
  10. AMLODIPINE [Concomitant]
     Active Substance: AMLODIPINE BESYLATE

REACTIONS (1)
  - Diabetes mellitus inadequate control [Unknown]
